FAERS Safety Report 16708989 (Version 1)
Quarter: 2019Q3

REPORT INFORMATION
  Report Type: Spontaneous
  Country: DE (occurrence: DE)
  Receive Date: 20190816
  Receipt Date: 20190816
  Transmission Date: 20191004
  Serious: Yes (Hospitalization)
  Sender: FDA-Public Use
  Company Number: DE-TEVA-2019-DE-1092514

PATIENT
  Age: 76 Year
  Sex: Male

DRUGS (9)
  1. REKAWAN [Concomitant]
     Active Substance: POTASSIUM CHLORIDE
     Dosage: 1-1-1,
     Route: 048
  2. ASPIRIN. [Concomitant]
     Active Substance: ASPIRIN
     Dosage: 100 MG, 1-0-0,
     Route: 048
  3. FUROSEMID [Suspect]
     Active Substance: FUROSEMIDE
     Dosage: 500 MG, 1/4-1/2-0,
     Route: 048
  4. ALLOPURINOL. [Suspect]
     Active Substance: ALLOPURINOL
     Dosage: 100 MG, 1-0-0,
     Route: 048
  5. TAMSULOSIN [Concomitant]
     Active Substance: TAMSULOSIN
     Dosage: 0.4 MG, 0-0-1,
     Route: 048
  6. TILIDIN [Concomitant]
     Active Substance: NALOXONE HYDROCHLORIDE\TILIDINE HYDROCHLORIDE
     Route: 048
  7. METOPROLOLSUCCINATE/HYDROCHLOROTHIAZIDE SANDO [Suspect]
     Active Substance: HYDROCHLOROTHIAZIDE\METOPROLOL SUCCINATE
     Dosage: 95 MG, 1-0-1,
     Route: 048
  8. SIMVASTATIN. [Concomitant]
     Active Substance: SIMVASTATIN
     Dosage: 20 MG, 0-0-1,
     Route: 048
  9. PANTOPRAZOL [Concomitant]
     Active Substance: PANTOPRAZOLE SODIUM
     Dosage: 40 MG, 1-0-0,
     Route: 048

REACTIONS (5)
  - Back pain [Unknown]
  - Hypokalaemia [Unknown]
  - Decreased appetite [Unknown]
  - Renal impairment [Unknown]
  - Malaise [Unknown]
